FAERS Safety Report 23386016 (Version 2)
Quarter: 2024Q1

REPORT INFORMATION
  Report Type: Spontaneous
  Country: JP (occurrence: JP)
  Receive Date: 20240110
  Receipt Date: 20240214
  Transmission Date: 20240410
  Serious: Yes (Death, Hospitalization, Other)
  Sender: FDA-Public Use
  Company Number: JP-ASTELLAS-2023JP012658

PATIENT
  Sex: Female

DRUGS (4)
  1. PROGRAF [Suspect]
     Active Substance: TACROLIMUS
     Indication: Crohn^s disease
     Dosage: UNK UNK, UNKNOWN FREQ.
     Route: 065
  2. CYCLOSPORINE [Concomitant]
     Active Substance: CYCLOSPORINE
     Indication: Crohn^s disease
     Dosage: UNK UNK, UNKNOWN FREQ.
     Route: 065
  3. PREDNISOLONE [Concomitant]
     Active Substance: PREDNISOLONE
     Indication: Crohn^s disease
     Dosage: UNK UNK, UNKNOWN FREQ.
     Route: 065
  4. PREDNISOLONE [Concomitant]
     Active Substance: PREDNISOLONE
     Dosage: 60 MG/BODY, UNKNOWN FREQ.
     Route: 065

REACTIONS (10)
  - Ascites [Fatal]
  - Hepatic function abnormal [Fatal]
  - Thrombocytopenia [Fatal]
  - Renal impairment [Fatal]
  - Colon cancer [Fatal]
  - Hepatosplenomegaly [Fatal]
  - Palmar erythema [Fatal]
  - Malaise [Fatal]
  - Jaundice [Fatal]
  - Off label use [Unknown]
